FAERS Safety Report 17181122 (Version 1)
Quarter: 2019Q4

REPORT INFORMATION
  Report Type: Spontaneous
  Country: TR (occurrence: TR)
  Receive Date: 20191220
  Receipt Date: 20191220
  Transmission Date: 20200122
  Serious: Yes (Hospitalization, Other)
  Sender: FDA-Public Use
  Company Number: TR-SUN PHARMACEUTICAL INDUSTRIES LTD-2019RR-231257

PATIENT
  Age: 3 Day
  Sex: Male

DRUGS (6)
  1. PROPAFENONE. [Suspect]
     Active Substance: PROPAFENONE
     Indication: CARDIOMYOPATHY
     Dosage: UNK
     Route: 065
  2. LASIX [Suspect]
     Active Substance: FUROSEMIDE
     Indication: CARDIOMYOPATHY
     Dosage: UNK
     Route: 065
  3. MILRINONE [Suspect]
     Active Substance: MILRINONE
     Indication: CARDIOMYOPATHY
     Dosage: UNK
     Route: 065
  4. AMIODARONE [Suspect]
     Active Substance: AMIODARONE
     Indication: SUPRAVENTRICULAR TACHYCARDIA
     Dosage: UNK
     Route: 065
  5. ADENOSINE. [Suspect]
     Active Substance: ADENOSINE
     Indication: SUPRAVENTRICULAR TACHYCARDIA
     Dosage: 400 MICROGRAM/KILOGRAM
     Route: 065
  6. DIGOXIN. [Suspect]
     Active Substance: DIGOXIN
     Indication: TACHYCARDIA FOETAL
     Dosage: UNK
     Route: 064

REACTIONS (4)
  - Foetal exposure during pregnancy [Unknown]
  - Cardiomyopathy [Not Recovered/Not Resolved]
  - Premature baby [Unknown]
  - Therapy non-responder [Unknown]
